FAERS Safety Report 18984998 (Version 1)
Quarter: 2021Q1

REPORT INFORMATION
  Report Type: Spontaneous
  Country: IT (occurrence: IT)
  Receive Date: 20210309
  Receipt Date: 20210309
  Transmission Date: 20210420
  Serious: Yes (Hospitalization)
  Sender: FDA-Public Use
  Company Number: IT-JNJFOC-20210305470

PATIENT
  Age: 82 Year
  Sex: Male

DRUGS (6)
  1. METFORAL [Concomitant]
     Active Substance: METFORMIN HYDROCHLORIDE
  2. XARELTO [Suspect]
     Active Substance: RIVAROXABAN
     Indication: ATRIAL FIBRILLATION
     Route: 048
  3. MEMANTINE HYDROCHLORIDE. [Concomitant]
     Active Substance: MEMANTINE HYDROCHLORIDE
  4. SIVASTIN [Concomitant]
     Active Substance: SIMVASTATIN
  5. ALMARYTM [Concomitant]
     Active Substance: FLECAINIDE ACETATE
  6. ANDROCUR [Concomitant]
     Active Substance: CYPROTERONE ACETATE

REACTIONS (4)
  - Multiple injuries [Recovered/Resolved]
  - Haematoma muscle [Recovered/Resolved]
  - Arterial haemorrhage [Recovered/Resolved]
  - Pelvic fracture [Recovered/Resolved]

NARRATIVE: CASE EVENT DATE: 20210210
